FAERS Safety Report 7084616-2 (Version None)
Quarter: 2010Q4

REPORT INFORMATION
  Report Type: 
  Country: None (occurrence: None)
  Receive Date: 20101104
  Receipt Date: 20101023
  Transmission Date: 20110411
  Serious: Yes (Other)
  Sender: FDA-Public Use
  Company Number: PHHY2010US67486

PATIENT
  Sex: Male

DRUGS (2)
  1. CLOZARIL [Suspect]
  2. VITAMIN TAB [Concomitant]

REACTIONS (1)
  - THYROID DISORDER [None]
